APPROVED DRUG PRODUCT: SOLOSEC
Active Ingredient: SECNIDAZOLE
Strength: 2GM/PACKET
Dosage Form/Route: GRANULE;ORAL
Application: N209363 | Product #001
Applicant: EVOFEM INC
Approved: Sep 15, 2017 | RLD: Yes | RS: Yes | Type: RX

PATENTS:
Patent 10335390 | Expires: Sep 4, 2035
Patent 12280037 | Expires: Dec 11, 2041
Patent 11000507 | Expires: Sep 4, 2035
Patent 11000507 | Expires: Sep 4, 2035
Patent 11020377 | Expires: Sep 4, 2035
Patent 11020377 | Expires: Sep 4, 2035
Patent 11000508 | Expires: Sep 4, 2035
Patent 11000508 | Expires: Sep 4, 2035
Patent 10682338 | Expires: Sep 4, 2035
Patent 10849884 | Expires: Sep 4, 2035
Patent 10849884 | Expires: Sep 4, 2035
Patent 10335390 | Expires: Sep 4, 2035
Patent 10857133 | Expires: Sep 4, 2035
Patent 11602522 | Expires: Sep 4, 2035
Patent 11602522 | Expires: Sep 4, 2035
Patent 10849884 | Expires: Sep 4, 2035
Patent 11000507 | Expires: Sep 4, 2035
Patent 11020377 | Expires: Sep 4, 2035
Patent 11000508 | Expires: Sep 4, 2035
Patent 10849884 | Expires: Sep 4, 2035
Patent 10857133 | Expires: Sep 4, 2035
Patent 10682338 | Expires: Sep 4, 2035
Patent 11000508 | Expires: Sep 4, 2035
Patent 11000507 | Expires: Sep 4, 2035
Patent 11020377 | Expires: Sep 4, 2035
Patent 11684607 | Expires: Sep 16, 2035
Patent 11684607 | Expires: Sep 16, 2035
Patent 11684607 | Expires: Sep 16, 2035
Patent 11684607 | Expires: Sep 16, 2035
Patent 11324721 | Expires: Sep 4, 2035
Patent 11324721 | Expires: Sep 4, 2035
Patent 11324721 | Expires: Sep 4, 2035
Patent 11324721 | Expires: Sep 4, 2035

EXCLUSIVITY:
Code: NCE | Date: Sep 15, 2022
Code: GAIN | Date: Sep 15, 2027